FAERS Safety Report 8654908 (Version 5)
Quarter: 2012Q4

REPORT INFORMATION
  Report Type: 
  Country: US (occurrence: US)
  Receive Date: 20120709
  Receipt Date: 20121004
  Transmission Date: 20130627
  Serious: Yes (Hospitalization)
  Sender: FDA-Public Use
  Company Number: US-ASTRAZENECA-2012SE44544

PATIENT
  Age: 64 Year
  Sex: Male

DRUGS (3)
  1. NEXIUM [Suspect]
     Route: 048
  2. COUMADIN [Suspect]
     Route: 065
  3. PREVACID [Concomitant]

REACTIONS (9)
  - Pain [Unknown]
  - Reflux laryngitis [Unknown]
  - Haemorrhage [Unknown]
  - Choking [Unknown]
  - Feeling abnormal [Unknown]
  - Discomfort [Unknown]
  - Nausea [Unknown]
  - Malaise [Unknown]
  - Drug dose omission [Unknown]
